FAERS Safety Report 4544474-4 (Version None)
Quarter: 2004Q4

REPORT INFORMATION
  Report Type: 
  Country: None (occurrence: None)
  Receive Date: 20041230
  Receipt Date: 20041215
  Transmission Date: 20050328
  Serious: Yes (Hospitalization)
  Sender: FDA-Public Use
  Company Number: 2004-03968

PATIENT
  Age: 80 Year
  Sex: Male

DRUGS (1)
  1. THERACYS [Suspect]
     Indication: BLADDER CANCER
     Route: 036
     Dates: start: 20041028

REACTIONS (2)
  - BOVINE TUBERCULOSIS [None]
  - DISSEMINATED TUBERCULOSIS [None]
